FAERS Safety Report 8198692-7 (Version None)
Quarter: 2012Q1

REPORT INFORMATION
  Report Type: 
  Country: None (occurrence: None)
  Receive Date: 20120309
  Receipt Date: 20120227
  Transmission Date: 20120608
  Serious: Yes (Hospitalization)
  Sender: FDA-Public Use
  Company Number: FR-ELI_LILLY_AND_COMPANY-FR201202007385

PATIENT
  Sex: Female

DRUGS (6)
  1. CARBOPLATIN [Concomitant]
     Indication: OVARIAN CANCER
     Dosage: 689.2 MG, UNKNOWN
     Route: 042
     Dates: end: 20111227
  2. POLARAMINE [Concomitant]
     Indication: OVARIAN CANCER
     Dosage: 5 MG, UNK
     Route: 042
     Dates: start: 20111227, end: 20111227
  3. METHYLPREDNISOLONE [Concomitant]
     Indication: OVARIAN CANCER
     Dosage: 120 MG, UNK
     Route: 042
     Dates: start: 20111227, end: 20111227
  4. EMEND [Concomitant]
     Indication: OVARIAN CANCER
     Dosage: 125 MG, UNK
     Route: 042
     Dates: start: 20111227, end: 20111227
  5. GEMZAR [Suspect]
     Indication: OVARIAN CANCER
     Dosage: 1840 MG, UNKNOWN
     Route: 042
     Dates: end: 20111227
  6. ONDANSETRON [Concomitant]
     Indication: OVARIAN CANCER
     Dosage: 8 MG, UNK
     Route: 042
     Dates: start: 20111227, end: 20111227

REACTIONS (4)
  - ERYTHEMA [None]
  - RASH [None]
  - THROAT TIGHTNESS [None]
  - PRURITUS [None]
